FAERS Safety Report 11792526 (Version 1)
Quarter: 2015Q4

REPORT INFORMATION
  Report Type: Spontaneous
  Country: FR (occurrence: FR)
  Receive Date: 20151202
  Receipt Date: 20151202
  Transmission Date: 20160305
  Serious: Yes (Hospitalization)
  Sender: FDA-Public Use
  Company Number: FR-ROCHE-1671181

PATIENT
  Age: 74 Year
  Sex: Female

DRUGS (6)
  1. ROCEPHINE [Suspect]
     Active Substance: CEFTRIAXONE SODIUM
     Indication: BRAIN ABSCESS
     Route: 042
     Dates: start: 20150928, end: 20150929
  2. DEPAKINE [Concomitant]
     Active Substance: VALPROATE SODIUM
     Indication: EPILEPSY
  3. LEVETIRACETAM MYLAN [Suspect]
     Active Substance: LEVETIRACETAM
     Indication: EPILEPSY
     Route: 048
     Dates: start: 20150930, end: 20151005
  4. ACICLOVIR MYLAN [Suspect]
     Active Substance: ACYCLOVIR
     Dosage: 700 MG FOR 1 HOUR EVERY 8 HOURS
     Route: 042
     Dates: end: 20151002
  5. ACICLOVIR MYLAN [Suspect]
     Active Substance: ACYCLOVIR
     Indication: BRAIN ABSCESS
     Dosage: 1200 MG FOR 1 HOUR EVERY 8 HOURS
     Route: 042
     Dates: start: 20150929
  6. CLAMOXYL (FRANCE) [Suspect]
     Active Substance: AMOXICILLIN\CLAVULANIC ACID
     Indication: BRAIN ABSCESS
     Route: 042
     Dates: start: 20150928, end: 20150929

REACTIONS (1)
  - Rash maculo-papular [Recovering/Resolving]

NARRATIVE: CASE EVENT DATE: 20151005
